FAERS Safety Report 8556033-7 (Version None)
Quarter: 2012Q3

REPORT INFORMATION
  Report Type: 
  Country: None (occurrence: None)
  Receive Date: 20120801
  Receipt Date: 20120705
  Transmission Date: 20120928
  Serious: Yes (Other)
  Sender: FDA-Public Use
  Company Number: JP-009507513-1207JPN000172

PATIENT

DRUGS (8)
  1. TRUVADA [Suspect]
     Indication: HIV INFECTION
     Dosage: DIVIDED DOSE FREQUENCY U
     Route: 048
     Dates: start: 20060830
  2. ENALAPRIL MALEATE [Concomitant]
     Indication: HYPERTENSION
     Route: 048
  3. ADVATE [Concomitant]
     Indication: FACTOR VIII DEFICIENCY
     Route: 030
  4. REBETOL [Suspect]
     Dosage: DAILY DOSAGE UNKNOWN
     Route: 048
  5. ISENTRESS [Concomitant]
     Indication: HIV INFECTION
     Dosage: DIVIDED DOSE FREQUENCY U
     Route: 048
     Dates: start: 20100712
  6. EFAVIRENZ [Suspect]
     Indication: HIV INFECTION
     Dosage: DIVIDED DOSE FREQUENCY U
     Route: 048
     Dates: start: 20000901, end: 20100711
  7. PEG-INTRON [Suspect]
     Dosage: DAILY DOSAGE UNKNOWN
     Route: 058
  8. FAMOTIDINE [Concomitant]
     Indication: GASTRITIS
     Route: 065

REACTIONS (3)
  - PANCYTOPENIA [None]
  - DIABETES MELLITUS [None]
  - HEPATITIS C [None]
